FAERS Safety Report 13053609 (Version 2)
Quarter: 2017Q1

REPORT INFORMATION
  Report Type: Report from Study
  Country: None (occurrence: CA)
  Receive Date: 20161222
  Receipt Date: 20170203
  Transmission Date: 20170428
  Serious: Yes (Hospitalization)
  Sender: FDA-Public Use
  Company Number: CA-ABBVIE-16K-028-1812972-00

PATIENT
  Sex: Male

DRUGS (1)
  1. HUMIRA [Suspect]
     Active Substance: ADALIMUMAB
     Indication: CROHN^S DISEASE
     Route: 058
     Dates: start: 20160519

REACTIONS (7)
  - Haematochezia [Recovered/Resolved]
  - Influenza like illness [Recovered/Resolved]
  - Crohn^s disease [Recovered/Resolved]
  - Drug effect incomplete [Not Recovered/Not Resolved]
  - Haematochezia [Recovered/Resolved]
  - Feeling cold [Not Recovered/Not Resolved]
  - Anaemia [Recovered/Resolved]

NARRATIVE: CASE EVENT DATE: 2016
